FAERS Safety Report 25889321 (Version 1)
Quarter: 2025Q4

REPORT INFORMATION
  Report Type: Spontaneous
  Country: US (occurrence: US)
  Receive Date: 20251007
  Receipt Date: 20251007
  Transmission Date: 20260117
  Serious: No
  Sender: AUROBINDO
  Company Number: US-AUROBINDO-AUR-APL-2024-045849

PATIENT
  Sex: Female

DRUGS (3)
  1. CLINDAMYCIN HYDROCHLORIDE [Suspect]
     Active Substance: CLINDAMYCIN HYDROCHLORIDE
     Indication: Product used for unknown indication
     Dosage: 3 DOSAGE FORM, 3 TIMES A DAY
     Route: 048
  2. TUKYSA [Concomitant]
     Active Substance: TUCATINIB
     Indication: Brain cancer metastatic
     Dosage: UNK
     Route: 065
  3. TUKYSA [Concomitant]
     Active Substance: TUCATINIB
     Dosage: 4 DOSAGE FORM, TWO TIMES A DAY (150 MG PER TABLET, TAKE 2 TABLETS EVERY MORNING AND 2 TABLETS EVERY
     Route: 065
     Dates: start: 20240710

REACTIONS (2)
  - Rash erythematous [Unknown]
  - Rash pruritic [Unknown]
